FAERS Safety Report 7850505-6 (Version None)
Quarter: 2011Q4

REPORT INFORMATION
  Report Type: 
  Country: None (occurrence: None)
  Receive Date: 20111026
  Receipt Date: 20111026
  Transmission Date: 20120403
  Serious: Yes (Other)
  Sender: FDA-Public Use
  Company Number: None

PATIENT
  Sex: Female
  Weight: 54.431 kg

DRUGS (1)
  1. SOLODYN [Suspect]
     Indication: ACNE
     Dosage: 1 PILL
     Route: 048
     Dates: start: 20111016, end: 20111021

REACTIONS (5)
  - RASH [None]
  - URTICARIA [None]
  - ABNORMAL SENSATION IN EYE [None]
  - HEADACHE [None]
  - PRURITUS [None]
